FAERS Safety Report 15349232 (Version 1)
Quarter: 2018Q3

REPORT INFORMATION
  Report Type: Spontaneous
  Country: RU (occurrence: RU)
  Receive Date: 20180904
  Receipt Date: 20180904
  Transmission Date: 20181010
  Serious: Yes (Hospitalization, Other)
  Sender: FDA-Public Use
  Company Number: RU-ASTRAZENECA-2018SE26339

PATIENT
  Age: 64 Year
  Sex: Female
  Weight: 92 kg

DRUGS (8)
  1. CARDIOMAGNYL [Concomitant]
     Active Substance: ASPIRIN\MAGNESIUM HYDROXIDE
  2. TORVACARD [Concomitant]
     Active Substance: ATORVASTATIN CALCIUM
  3. CONCOR [Concomitant]
     Active Substance: BISOPROLOL FUMARATE
  4. BRILINTA [Suspect]
     Active Substance: TICAGRELOR
     Indication: MYOCARDIAL INFARCTION
     Route: 048
     Dates: start: 20171215
  5. TEOTARD [Concomitant]
     Active Substance: THEOPHYLLINE ANHYDROUS
  6. AMLODIPIN [Concomitant]
     Active Substance: AMLODIPINE BESYLATE
  7. PREDUCTAL [Concomitant]
     Active Substance: TRIMETAZIDINE DIHYDROCHLORIDE
  8. LOSAP [Concomitant]

REACTIONS (6)
  - Heart rate increased [Recovered/Resolved]
  - Angina unstable [Not Recovered/Not Resolved]
  - Contusion [Recovered/Resolved]
  - Blood pressure decreased [Recovered/Resolved]
  - Oedema peripheral [Recovered/Resolved]
  - Blood pressure increased [Recovered/Resolved]

NARRATIVE: CASE EVENT DATE: 201801
